FAERS Safety Report 10791653 (Version 3)
Quarter: 2015Q1

REPORT INFORMATION
  Report Type: Report from Study
  Country: US (occurrence: US)
  Receive Date: 20150213
  Receipt Date: 20150310
  Transmission Date: 20150721
  Serious: Yes (Hospitalization)
  Sender: FDA-Public Use
  Company Number: US-BIOGENIDEC-2015BI013867

PATIENT
  Age: 52 Year
  Sex: Male

DRUGS (1)
  1. TYSABRI [Suspect]
     Active Substance: NATALIZUMAB
     Indication: MULTIPLE SCLEROSIS
     Route: 042
     Dates: start: 20071008

REACTIONS (4)
  - Oedema [Unknown]
  - Multiple sclerosis relapse [Not Recovered/Not Resolved]
  - Cellulitis [Unknown]
  - Abscess limb [Unknown]

NARRATIVE: CASE EVENT DATE: 2015
